FAERS Safety Report 4415447-7 (Version None)
Quarter: 2004Q3

REPORT INFORMATION
  Report Type: 
  Country: None (occurrence: None)
  Receive Date: 20040729
  Receipt Date: 20040714
  Transmission Date: 20050211
  Serious: Yes (Hospitalization)
  Sender: FDA-Public Use
  Company Number: 200406396

PATIENT
  Age: 70 Year
  Sex: Female

DRUGS (7)
  1. BOTOX [Suspect]
     Indication: BLEPHAROSPASM
     Dosage: 75 UNITS PRN IM
     Route: 030
     Dates: start: 19940101
  2. DITROPAN XL [Concomitant]
  3. PRINZIDE [Concomitant]
  4. ALLOPURINOL [Concomitant]
  5. ASPIRIN [Concomitant]
  6. NEXIUM [Concomitant]
  7. ZOCOR [Concomitant]

REACTIONS (5)
  - DIZZINESS [None]
  - NAUSEA [None]
  - NIGHT SWEATS [None]
  - NIGHTMARE [None]
  - PHOTOPHOBIA [None]
